FAERS Safety Report 4429434-6 (Version None)
Quarter: 2004Q3

REPORT INFORMATION
  Report Type: 
  Country: None (occurrence: None)
  Receive Date: 20040816
  Receipt Date: 20040730
  Transmission Date: 20050211
  Serious: Yes (Hospitalization)
  Sender: FDA-Public Use
  Company Number: 04P-009-0263911-00

PATIENT
  Age: 49 Year
  Sex: Male
  Weight: 97 kg

DRUGS (2)
  1. HUMIRA [Suspect]
     Indication: RHEUMATOID ARTHRITIS
     Dosage: SUBCUTANEOUS
     Route: 058
     Dates: start: 20040309
  2. HUMIRA [Suspect]
     Indication: RHEUMATOID ARTHRITIS
     Dosage: SUBCUTANEOUS
     Route: 058
     Dates: start: 20040519

REACTIONS (4)
  - LYMPHADENOPATHY [None]
  - PERITONSILLAR ABSCESS [None]
  - PHARYNGEAL OEDEMA [None]
  - RENAL FAILURE [None]
